FAERS Safety Report 20499558 (Version 4)
Quarter: 2022Q2

REPORT INFORMATION
  Report Type: Spontaneous
  Country: US (occurrence: US)
  Receive Date: 20220222
  Receipt Date: 20220428
  Transmission Date: 20220721
  Serious: Yes (Other)
  Sender: FDA-Public Use
  Company Number: US-GLAXOSMITHKLINE-US2022028885

PATIENT
  Age: 55 Year
  Sex: Female

DRUGS (2)
  1. ZEJULA [Suspect]
     Active Substance: NIRAPARIB
     Indication: Ovarian cancer
     Dosage: 200 MG, QD
     Dates: start: 20220211
  2. ZEJULA [Suspect]
     Active Substance: NIRAPARIB
     Dosage: 200 MG, QD
     Dates: end: 20220411

REACTIONS (10)
  - Tumour compression [Unknown]
  - Nausea [Unknown]
  - Sneezing [Unknown]
  - Condition aggravated [Unknown]
  - Dizziness [Unknown]
  - Musculoskeletal chest pain [Recovering/Resolving]
  - Muscle strain [Recovering/Resolving]
  - Back pain [Unknown]
  - Ureteral stent insertion [Unknown]
  - Tumour pain [Unknown]

NARRATIVE: CASE EVENT DATE: 20220201
